FAERS Safety Report 7829814-2 (Version None)
Quarter: 2011Q4

REPORT INFORMATION
  Report Type: 
  Country: None (occurrence: None)
  Receive Date: 20111020
  Receipt Date: 20111020
  Transmission Date: 20120403
  Serious: Yes (Disabling, Congenital Anomaly)
  Sender: FDA-Public Use
  Company Number: None

PATIENT
  Age: 72 Year
  Sex: Female
  Weight: 81.6475 kg

DRUGS (1)
  1. ESTRACE [Suspect]
     Indication: VAGINAL DISORDER
     Dosage: 1MG - 2X WEEKLY
     Route: 067
     Dates: start: 20060101, end: 20110101

REACTIONS (1)
  - SPEECH DISORDER [None]
